FAERS Safety Report 18497045 (Version 1)
Quarter: 2020Q4

REPORT INFORMATION
  Report Type: Spontaneous
  Country: EG (occurrence: EG)
  Receive Date: 20201112
  Receipt Date: 20201112
  Transmission Date: 20210114
  Serious: Yes (Death, Hospitalization)
  Sender: FDA-Public Use
  Company Number: EG-ELI_LILLY_AND_COMPANY-EG202008003378

PATIENT
  Age: 65 Year
  Sex: Female

DRUGS (4)
  1. BONECARE [Concomitant]
     Indication: OSTEOPOROSIS
     Dosage: UNK
  2. OSTEOCARE [Suspect]
     Active Substance: CALCIUM\CHOLECALCIFEROL\MAGNESIUM\ZINC
     Indication: PRODUCT USED FOR UNKNOWN INDICATION
     Dosage: UNK UNK, UNKNOWN
     Route: 065
  3. FORTEO [Suspect]
     Active Substance: TERIPARATIDE
     Indication: OSTEOPOROSIS
     Dosage: 20 UG, DAILY
     Route: 058
  4. CALCIUM [Concomitant]
     Active Substance: CALCIUM
     Indication: OSTEOPOROSIS
     Dosage: UNK

REACTIONS (4)
  - Renal failure [Unknown]
  - Haemoglobin decreased [Unknown]
  - Mobility decreased [Unknown]
  - Blood calcium increased [Fatal]

NARRATIVE: CASE EVENT DATE: 201912
